FAERS Safety Report 7089828-X (Version None)
Quarter: 2010Q4

REPORT INFORMATION
  Report Type: 
  Country: None (occurrence: None)
  Receive Date: 20101108
  Receipt Date: 20101025
  Transmission Date: 20110411
  Serious: Yes (Other)
  Sender: FDA-Public Use
  Company Number: PHHY2010US51212

PATIENT
  Sex: Female

DRUGS (10)
  1. RECLAST [Suspect]
     Indication: OSTEOPOROSIS
     Dosage: UNK
     Dates: start: 20090811, end: 20100928
  2. FOSAMAX [Suspect]
  3. PREMARIN [Concomitant]
     Dosage: 0.3 MG
     Dates: start: 20090713
  4. PREDNISONE [Concomitant]
  5. HEPARIN [Concomitant]
     Indication: THROMBOSIS PROPHYLAXIS
     Route: 058
  6. LIPITOR [Concomitant]
  7. NORVASC [Concomitant]
  8. TIMOPTIC [Concomitant]
  9. AZOPT [Concomitant]
  10. ASPIRIN [Concomitant]

REACTIONS (12)
  - BONE DENSITY ABNORMAL [None]
  - BUNDLE BRANCH BLOCK LEFT [None]
  - CARDIAC DISORDER [None]
  - FALL [None]
  - FRACTURE [None]
  - GASTROOESOPHAGEAL REFLUX DISEASE [None]
  - HAEMATURIA [None]
  - HEREDITARY HAEMORRHAGIC TELANGIECTASIA [None]
  - HYPERLIPIDAEMIA [None]
  - PAIN [None]
  - PELVIC FRACTURE [None]
  - URINARY TRACT INFECTION [None]
